FAERS Safety Report 13840532 (Version 1)
Quarter: 2017Q3

REPORT INFORMATION
  Report Type: Spontaneous
  Country: US (occurrence: US)
  Receive Date: 20170807
  Receipt Date: 20170807
  Transmission Date: 20171127
  Serious: Yes (Other)
  Sender: FDA-Public Use
  Company Number: US-INDIVIOR LIMITED-INDV-102079-2017

PATIENT
  Age: 79 Year
  Sex: Female

DRUGS (4)
  1. SUBOXONE [Suspect]
     Active Substance: BUPRENORPHINE HYDROCHLORIDE\NALOXONE HYDROCHLORIDE
     Dosage: 1/4 OF A 2MG FILM, FOR 3- 4 DAYS
     Route: 065
     Dates: end: 201705
  2. SUBOXONE [Suspect]
     Active Substance: BUPRENORPHINE HYDROCHLORIDE\NALOXONE HYDROCHLORIDE
     Dosage: CUT 2MG FILM IN HALF TO TAPER
     Route: 065
     Dates: start: 2017
  3. SUBOXONE [Suspect]
     Active Substance: BUPRENORPHINE HYDROCHLORIDE\NALOXONE HYDROCHLORIDE
     Indication: DRUG USE DISORDER
     Dosage: 2 MG, UNK
     Route: 065
  4. SUBOXONE [Suspect]
     Active Substance: BUPRENORPHINE HYDROCHLORIDE\NALOXONE HYDROCHLORIDE
     Dosage: 1/2 OF A 2 MG, UNK
     Route: 065

REACTIONS (16)
  - Adverse event [Unknown]
  - Intentional underdose [Unknown]
  - Drug dependence [Unknown]
  - Disturbance in attention [Unknown]
  - Sciatica [Unknown]
  - Fear [Unknown]
  - Feeling abnormal [Unknown]
  - Psychomotor hyperactivity [Unknown]
  - Drug withdrawal syndrome [Unknown]
  - Loss of personal independence in daily activities [Unknown]
  - Product preparation error [Unknown]
  - Back disorder [Unknown]
  - Hip surgery [Unknown]
  - Osteoarthritis [Unknown]
  - Thinking abnormal [Unknown]
  - Pain [Unknown]

NARRATIVE: CASE EVENT DATE: 2016
